FAERS Safety Report 14015955 (Version 2)
Quarter: 2017Q4

REPORT INFORMATION
  Report Type: Spontaneous
  Country: US (occurrence: US)
  Receive Date: 20170927
  Receipt Date: 20171017
  Transmission Date: 20180321
  Serious: Yes (Death)
  Sender: FDA-Public Use
  Company Number: US-PFIZER INC-2017416897

PATIENT
  Age: 70 Year
  Sex: Female

DRUGS (1)
  1. VFEND [Suspect]
     Active Substance: VORICONAZOLE
     Indication: SINUSITIS ASPERGILLUS
     Dosage: 50 MG, UNK

REACTIONS (1)
  - Leukaemia [Fatal]
